FAERS Safety Report 15675295 (Version 1)
Quarter: 2018Q4

REPORT INFORMATION
  Report Type: Spontaneous
  Country: US (occurrence: US)
  Receive Date: 20181129
  Receipt Date: 20181129
  Transmission Date: 20190205
  Serious: Yes (Disabling)
  Sender: FDA-Public Use
  Company Number: None

PATIENT
  Age: 64 Year
  Sex: Male
  Weight: 94.95 kg

DRUGS (1)
  1. PRIVIGEN [Suspect]
     Active Substance: HUMAN IMMUNOGLOBULIN G
     Indication: CHRONIC INFLAMMATORY DEMYELINATING POLYRADICULONEUROPATHY
     Dosage: ?          QUANTITY:1 1;?

REACTIONS (7)
  - Hypertension [None]
  - Tinnitus [None]
  - Muscular weakness [None]
  - Product substitution [None]
  - Migraine [None]
  - Ocular hyperaemia [None]
  - Swelling [None]

NARRATIVE: CASE EVENT DATE: 20181115
